FAERS Safety Report 5223667-7 (Version None)
Quarter: 2007Q1

REPORT INFORMATION
  Report Type: 
  Country: None (occurrence: None)
  Receive Date: 20070130
  Receipt Date: 20070118
  Transmission Date: 20070707
  Serious: Yes (Death, Hospitalization, Other)
  Sender: FDA-Public Use
  Company Number: HQWYE328305SEP06

PATIENT
  Sex: Male
  Weight: 59 kg

DRUGS (14)
  1. MYLOTARG [Suspect]
     Indication: ACUTE MYELOID LEUKAEMIA RECURRENT
     Route: 041
     Dates: start: 20060609, end: 20060609
  2. MYLOTARG [Suspect]
     Route: 041
     Dates: start: 20060623, end: 20060623
  3. CYTARABINE [Suspect]
     Indication: ACUTE MYELOID LEUKAEMIA RECURRENT
     Dosage: NOT PROVIDED
     Route: 042
     Dates: start: 20060610, end: 20060616
  4. CYTARABINE [Suspect]
     Dosage: NOT PROVIDED
     Route: 042
     Dates: start: 20060814, end: 20060818
  5. KYTRIL [Concomitant]
     Indication: PROPHYLAXIS
     Route: 042
     Dates: start: 20060610, end: 20060616
  6. SAXIZON [Concomitant]
     Indication: PROPHYLAXIS
     Route: 042
     Dates: start: 20060610, end: 20060616
  7. NOVANTRONE [Suspect]
     Indication: ACUTE MYELOID LEUKAEMIA RECURRENT
     Dosage: NOT PROVIDED
     Route: 042
     Dates: start: 20060814, end: 20060816
  8. ITRACONAZOLE [Concomitant]
     Indication: PROPHYLAXIS
     Route: 048
     Dates: start: 20060609, end: 20060630
  9. FAMOTIDINE [Concomitant]
     Indication: PROPHYLAXIS
     Route: 048
     Dates: start: 20060602
  10. SELBEX [Concomitant]
     Indication: PROPHYLAXIS
     Route: 048
     Dates: start: 20060602
  11. BACTRIM [Concomitant]
     Indication: PROPHYLAXIS
     Route: 048
     Dates: start: 20060602
  12. POLYMYXIN B SULFATE [Concomitant]
     Indication: PROPHYLAXIS
     Dosage: 3 MIU/DAY
     Route: 048
     Dates: start: 20060609
  13. IDARUBICIN HCL [Suspect]
     Indication: ACUTE MYELOID LEUKAEMIA RECURRENT
     Dosage: NOT PROVIDED
     Route: 042
     Dates: start: 20060610, end: 20060616
  14. FRAGMIN [Concomitant]
     Indication: PROPHYLAXIS
     Route: 041
     Dates: start: 20060609, end: 20060629

REACTIONS (9)
  - ANAEMIA [None]
  - CELLULITIS [None]
  - CONDITION AGGRAVATED [None]
  - DIARRHOEA [None]
  - EPISTAXIS [None]
  - HEPATIC FUNCTION ABNORMAL [None]
  - NEUTROPHIL COUNT DECREASED [None]
  - PLATELET COUNT DECREASED [None]
  - SEPSIS [None]
